FAERS Safety Report 6869198-X (Version None)
Quarter: 2010Q3

REPORT INFORMATION
  Report Type: 
  Country: None (occurrence: None)
  Receive Date: 20100722
  Receipt Date: 20080828
  Transmission Date: 20110219
  Serious: No
  Sender: FDA-Public Use
  Company Number: US-PFIZER INC-2008056994

PATIENT
  Sex: Female
  Weight: 56.363 kg

DRUGS (3)
  1. CHANTIX [Suspect]
     Dates: start: 20080401
  2. BUPROPION [Concomitant]
     Indication: DEPRESSION
  3. TRIFLUOPERAZINE [Concomitant]

REACTIONS (3)
  - AGITATION [None]
  - DEPRESSION [None]
  - EMOTIONAL DISORDER [None]
